FAERS Safety Report 6615272-2 (Version None)
Quarter: 2010Q1

REPORT INFORMATION
  Report Type: 
  Country: None (occurrence: None)
  Receive Date: 20100305
  Receipt Date: 20100224
  Transmission Date: 20100710
  Serious: Yes (Hospitalization)
  Sender: FDA-Public Use
  Company Number: US-MYLANLABS-2010S1003208

PATIENT
  Sex: Female

DRUGS (3)
  1. PHENYTOIN SODIUM [Suspect]
     Indication: GRAND MAL CONVULSION
     Route: 048
     Dates: end: 20090101
  2. DILANTIN [Interacting]
     Indication: GRAND MAL CONVULSION
     Route: 048
     Dates: start: 20090101
  3. FOLIC ACID [Interacting]
     Route: 048

REACTIONS (5)
  - ANTICONVULSANT DRUG LEVEL BELOW THERAPEUTIC [None]
  - DRUG INEFFECTIVE [None]
  - DRUG INTERACTION [None]
  - GRAND MAL CONVULSION [None]
  - HUMERUS FRACTURE [None]
